FAERS Safety Report 4643543-8 (Version None)
Quarter: 2005Q2

REPORT INFORMATION
  Report Type: 
  Country: None (occurrence: None)
  Receive Date: 20050425
  Receipt Date: 20050413
  Transmission Date: 20051028
  Serious: Yes (Other)
  Sender: FDA-Public Use
  Company Number: AU-JNJFOC-20050307648

PATIENT
  Age: 65 Year
  Sex: Female

DRUGS (9)
  1. REMICADE [Suspect]
     Indication: RHEUMATOID ARTHRITIS
     Dosage: 1.0 DOSE UNSPECIFIED
     Route: 042
  2. METHOTREXATE [Concomitant]
  3. PREDNISOLONE [Concomitant]
  4. OXYCONTIN [Concomitant]
  5. RAMIPRIL [Concomitant]
  6. ATORVASTATIN CALCIUM [Concomitant]
  7. ASPIRIN [Concomitant]
  8. MEBEVERINE [Concomitant]
  9. AMOXICILLIN [Concomitant]

REACTIONS (3)
  - ARTHRITIS BACTERIAL [None]
  - LISTERIOSIS [None]
  - STAPHYLOCOCCAL INFECTION [None]
